FAERS Safety Report 7874129-X (Version None)
Quarter: 2011Q4

REPORT INFORMATION
  Report Type: 
  Country: None (occurrence: None)
  Receive Date: 20111030
  Receipt Date: 20110516
  Transmission Date: 20120403
  Serious: No
  Sender: FDA-Public Use
  Company Number: US-AMGEN-USASP2011017115

PATIENT
  Age: 17 Year
  Sex: Female

DRUGS (4)
  1. PNEUMOCOCCAL VACCINE [Concomitant]
     Dates: start: 20110329, end: 20110329
  2. ENBREL [Suspect]
     Indication: JUVENILE ARTHRITIS
     Dosage: 50 MG, QWK
     Dates: start: 20110329, end: 20110425
  3. METHOTREXATE [Concomitant]
  4. INFLUENZA VACCINE [Concomitant]
     Dates: start: 20110329, end: 20110329

REACTIONS (5)
  - HEADACHE [None]
  - PAIN [None]
  - NAUSEA [None]
  - PYREXIA [None]
  - ABDOMINAL PAIN [None]
